FAERS Safety Report 5390420-3 (Version None)
Quarter: 2007Q3

REPORT INFORMATION
  Report Type: 
  Country: None (occurrence: None)
  Receive Date: 20070718
  Receipt Date: 20061108
  Transmission Date: 20080115
  Serious: No
  Sender: FDA-Public Use
  Company Number: US-KINGPHARMUSA00001-K200601421

PATIENT

DRUGS (6)
  1. LEVOXYL [Suspect]
     Indication: HYPOTHYROIDISM
     Dosage: 50 MCG, QD
     Route: 048
     Dates: start: 20051101, end: 20050101
  2. LEVOXYL [Suspect]
     Dosage: 75 MCG, QD
     Route: 048
     Dates: start: 20050101, end: 20050101
  3. LEVOXYL [Suspect]
     Dosage: 100 MCG, QD
     Route: 048
     Dates: start: 20050101, end: 20051222
  4. LEVOXYL [Suspect]
     Dosage: 50 MCG, QD
     Route: 048
     Dates: start: 20051229
  5. LEVOXYL [Suspect]
     Dosage: 75 MCG, QD
     Route: 048
     Dates: end: 20060201
  6. LEVOXYL [Suspect]
     Dosage: 125 MCG, QD
     Route: 048
     Dates: start: 20060101

REACTIONS (5)
  - BACK PAIN [None]
  - FATIGUE [None]
  - FEELING HOT [None]
  - HYPERTHYROIDISM [None]
  - PALPITATIONS [None]
